FAERS Safety Report 8959554 (Version 1)
Quarter: 2012Q4

REPORT INFORMATION
  Report Type: 
  Country: GB (occurrence: GB)
  Receive Date: 20121212
  Receipt Date: 20121212
  Transmission Date: 20130627
  Serious: Yes (Other)
  Sender: FDA-Public Use
  Company Number: GB-ASTRAZENECA-2012SE90897

PATIENT
  Age: 10592 Day
  Sex: Female
  Weight: 64 kg

DRUGS (5)
  1. OMEPRAZOLE [Suspect]
     Indication: PROPHYLAXIS AGAINST GASTROINTESTINAL ULCER
     Route: 048
     Dates: start: 20081016
  2. FOLIC ACID [Suspect]
     Indication: PREGNANCY
     Route: 048
     Dates: start: 200905
  3. CO-CODAMOL [Suspect]
     Indication: PAIN
     Dosage: 30/500 2 DF AS NEEDED
     Route: 048
     Dates: start: 20090106
  4. HYDROXOCOBALAMIN [Suspect]
     Indication: VITAMIN B12 DEFICIENCY
     Dates: start: 20091216
  5. PREGABALIN [Suspect]
     Indication: PAIN
     Route: 048
     Dates: start: 20080815

REACTIONS (4)
  - Exposure during pregnancy [Unknown]
  - Haemorrhage in pregnancy [Unknown]
  - Infection [Unknown]
  - Pelvic pain [Unknown]
